FAERS Safety Report 7065571-8 (Version None)
Quarter: 2010Q4

REPORT INFORMATION
  Report Type: 
  Country: None (occurrence: None)
  Receive Date: 20101027
  Receipt Date: 20101022
  Transmission Date: 20110411
  Serious: Yes (Hospitalization)
  Sender: FDA-Public Use
  Company Number: FR-BRISTOL-MYERS SQUIBB COMPANY-15352032

PATIENT
  Sex: Male

DRUGS (1)
  1. APROVEL TABS [Suspect]
     Indication: HYPERTENSION
     Route: 048
     Dates: start: 20100707, end: 20100925

REACTIONS (3)
  - ERYTHEMA [None]
  - PRURITUS [None]
  - RASH [None]
